FAERS Safety Report 15120684 (Version 1)
Quarter: 2018Q3

REPORT INFORMATION
  Report Type: Spontaneous
  Country: US (occurrence: US)
  Receive Date: 20180613
  Receipt Date: 20180613
  Transmission Date: 20181010
  Serious: Yes (Other)
  Sender: FDA-Public Use
  Company Number: None

PATIENT
  Age: 30 Year
  Sex: Female
  Weight: 90 kg

DRUGS (18)
  1. ASPIRIN. [Concomitant]
     Active Substance: ASPIRIN
  2. GABAPENTIN. [Concomitant]
     Active Substance: GABAPENTIN
  3. LETROZOLE. [Concomitant]
     Active Substance: LETROZOLE
  4. TOPAMAX [Concomitant]
     Active Substance: TOPIRAMATE
  5. LUNESTA [Concomitant]
     Active Substance: ESZOPICLONE
  6. OXYBUTYNIN. [Concomitant]
     Active Substance: OXYBUTYNIN CHLORIDE
  7. RISAQUAD [Concomitant]
  8. CELECOXIB. [Concomitant]
     Active Substance: CELECOXIB
  9. FOLIC ACID. [Concomitant]
     Active Substance: FOLIC ACID
  10. PROMETHAZINE [Concomitant]
     Active Substance: PROMETHAZINE\PROMETHAZINE HYDROCHLORIDE
  11. SENNA [Concomitant]
     Active Substance: SENNA LEAF\SENNOSIDES\SENNOSIDES A AND B
  12. WELLBUTRIN [Concomitant]
     Active Substance: BUPROPION HYDROCHLORIDE
  13. IBRANCE [Suspect]
     Active Substance: PALBOCICLIB
     Indication: BREAST CANCER
     Route: 048
     Dates: start: 20170626, end: 20180612
  14. PERCOCET [Concomitant]
     Active Substance: ACETAMINOPHEN\OXYCODONE HYDROCHLORIDE
  15. XANAX [Concomitant]
     Active Substance: ALPRAZOLAM
  16. CALCIUM [Concomitant]
     Active Substance: CALCIUM
  17. FERROUSSUL [Concomitant]
  18. VALIUM [Concomitant]
     Active Substance: DIAZEPAM

REACTIONS (1)
  - Disease progression [None]
